FAERS Safety Report 9457340 (Version 1)
Quarter: 2013Q3

REPORT INFORMATION
  Report Type: Report from Study
  Country: US (occurrence: US)
  Receive Date: 20130814
  Receipt Date: 20130814
  Transmission Date: 20140515
  Serious: Yes (Hospitalization, Other)
  Sender: FDA-Public Use
  Company Number: PHEH2013US017067

PATIENT
  Age: 30 Year
  Sex: Female

DRUGS (1)
  1. EXTAVIA [Suspect]
     Indication: MULTIPLE SCLEROSIS
     Dosage: 0.25 MG QOD
     Route: 058
     Dates: start: 20130629

REACTIONS (2)
  - Visual acuity reduced [Recovering/Resolving]
  - Injection site pain [Recovering/Resolving]
